FAERS Safety Report 9299939 (Version 1)
Quarter: 2013Q2

REPORT INFORMATION
  Report Type: Spontaneous
  Country: IT (occurrence: IT)
  Receive Date: 20130521
  Receipt Date: 20130521
  Transmission Date: 20140414
  Serious: Yes (Death)
  Sender: FDA-Public Use
  Company Number: IT-CELGENEUS-083-20785-13051351

PATIENT
  Age: 84 Year
  Sex: Male

DRUGS (5)
  1. THALIDOMIDE CELGENE [Suspect]
     Indication: PLASMA CELL MYELOMA
     Dosage: 50 MILLIGRAM
     Route: 048
     Dates: start: 20130312, end: 20130408
  2. THALIDOMIDE CELGENE [Suspect]
     Route: 048
     Dates: start: 201205
  3. THALIDOMIDE CELGENE [Suspect]
     Route: 048
     Dates: end: 20130409
  4. PREDNISOLONE [Concomitant]
     Indication: PLASMA CELL MYELOMA
     Route: 065
     Dates: start: 201205, end: 20130409
  5. CYCLOPHOSPHAMIDE [Concomitant]
     Indication: PLASMA CELL MYELOMA
     Route: 065
     Dates: start: 201205, end: 20130409

REACTIONS (1)
  - Pneumonia aspiration [Fatal]
